FAERS Safety Report 4446936-7 (Version None)
Quarter: 2004Q3

REPORT INFORMATION
  Report Type: 
  Country: None (occurrence: None)
  Receive Date: 20040908
  Receipt Date: 20040824
  Transmission Date: 20050211
  Serious: Yes (Other)
  Sender: FDA-Public Use
  Company Number: 2004-DE-04497GD

PATIENT
  Sex: Male

DRUGS (3)
  1. NEVIRAPINE (NEVIRAPINE) (NR) (NEVIRAPINE) [Suspect]
     Indication: HIV INFECTION
  2. 3TC (LAMIVUDINE) (NR) [Suspect]
     Indication: HIV INFECTION
  3. D4T (STAVUDINE) (NR) [Suspect]
     Indication: HIV INFECTION

REACTIONS (5)
  - DRUG INEFFECTIVE [None]
  - DRUG RESISTANCE [None]
  - LABORATORY TEST ABNORMAL [None]
  - NEPHROLITHIASIS [None]
  - TREATMENT NONCOMPLIANCE [None]
